FAERS Safety Report 20136251 (Version 1)
Quarter: 2021Q4

REPORT INFORMATION
  Report Type: Spontaneous
  Country: US (occurrence: None)
  Receive Date: 20211201
  Receipt Date: 20211201
  Transmission Date: 20220303
  Serious: Yes (Hospitalization)
  Sender: FDA-Public Use
  Company Number: None

PATIENT
  Age: 72 Year
  Sex: Male
  Weight: 97 kg

DRUGS (1)
  1. LISINOPRIL [Suspect]
     Active Substance: LISINOPRIL
     Indication: Hypertension
     Dates: start: 20160907, end: 20191114

REACTIONS (5)
  - Dysphonia [None]
  - Lip swelling [None]
  - Swollen tongue [None]
  - Swelling face [None]
  - Dysphagia [None]

NARRATIVE: CASE EVENT DATE: 20191114
